FAERS Safety Report 18066753 (Version 2)
Quarter: 2020Q3

REPORT INFORMATION
  Report Type: Spontaneous
  Country: US (occurrence: US)
  Receive Date: 20200724
  Receipt Date: 20200820
  Transmission Date: 20201103
  Serious: No
  Sender: FDA-Public Use
  Company Number: US-PFIZER INC-2020281435

PATIENT
  Age: 64 Year
  Sex: Female
  Weight: 63.5 kg

DRUGS (9)
  1. DILANTIN [Suspect]
     Active Substance: PHENYTOIN
     Indication: EPILEPSY
     Dosage: 150 MG, 1X/DAY
     Route: 048
  2. DILANTIN [Suspect]
     Active Substance: PHENYTOIN
     Indication: SEIZURE
     Dosage: 100 MG, DAILY
  3. DILANTIN [Suspect]
     Active Substance: PHENYTOIN
     Indication: EPILEPSY
     Dosage: CHEW 1 TAB DAILY
     Route: 048
  4. ZARONTIN [Suspect]
     Active Substance: ETHOSUXIMIDE
     Indication: SEIZURE
  5. DIAZEPAM. [Concomitant]
     Active Substance: DIAZEPAM
     Dosage: UNK
  6. EMGALITY [Concomitant]
     Active Substance: GALCANEZUMAB-GNLM
     Indication: MIGRAINE
     Dosage: UNK, MONTHLY
  7. DILANTIN [Suspect]
     Active Substance: PHENYTOIN
     Indication: SEIZURE
  8. PHENOBARB SODIUM [Concomitant]
     Dosage: UNK
  9. ZARONTIN [Suspect]
     Active Substance: ETHOSUXIMIDE
     Indication: EPILEPSY
     Dosage: 250 MG, 3X/DAY
     Route: 048

REACTIONS (2)
  - Hypoacusis [Unknown]
  - Headache [Unknown]
